FAERS Safety Report 10464995 (Version 1)
Quarter: 2014Q3

REPORT INFORMATION
  Report Type: Spontaneous
  Country: JP (occurrence: JP)
  Receive Date: 20140919
  Receipt Date: 20140919
  Transmission Date: 20150326
  Serious: Yes (Hospitalization, Other)
  Sender: FDA-Public Use
  Company Number: JP-PERRIGO-14JP009003

PATIENT
  Age: 35 Year
  Sex: Female

DRUGS (3)
  1. ACETAMINOPHEN 650MG ER 544 [Suspect]
     Active Substance: ACETAMINOPHEN
     Indication: NASOPHARYNGITIS
     Dosage: 900 MG, UNK
     Route: 048
  2. LOXOPROFEN [Concomitant]
     Active Substance: LOXOPROFEN
     Indication: NASOPHARYNGITIS
     Dosage: 120 MG, UNK
     Route: 065
  3. CEFCAPENE PIVOXIL [Concomitant]
     Active Substance: CEFCAPENE PIVOXIL
     Indication: NASOPHARYNGITIS
     Dosage: 300 MG, UNK
     Route: 065

REACTIONS (3)
  - Chronic hepatitis [Not Recovered/Not Resolved]
  - Mental status changes [Unknown]
  - Drug-induced liver injury [Recovering/Resolving]
